FAERS Safety Report 9860947 (Version 2)
Quarter: 2014Q1

REPORT INFORMATION
  Report Type: Spontaneous
  Country: AU (occurrence: AU)
  Receive Date: 20140202
  Receipt Date: 20140202
  Transmission Date: 20141002
  Serious: No
  Sender: FDA-Public Use
  Company Number: AU-ALLERGAN-1302358US

PATIENT
  Age: 60 Year
  Sex: Female

DRUGS (5)
  1. BOTOX [Suspect]
     Indication: SKIN WRINKLING
     Dosage: UNK UNK, SINGLE
     Route: 030
     Dates: start: 20130207, end: 20130207
  2. BOTOX [Suspect]
     Indication: SKIN WRINKLING
  3. STILNOX [Concomitant]
     Indication: INSOMNIA
  4. VITAMIN D [Concomitant]
     Indication: SUPPLEMENTATION THERAPY
  5. CALCIUM [Concomitant]
     Indication: SUPPLEMENTATION THERAPY

REACTIONS (4)
  - Hypersensitivity [Recovered/Resolved]
  - Drug ineffective [Unknown]
  - Injection site urticaria [Recovered/Resolved]
  - Eyelid oedema [Recovered/Resolved]
